FAERS Safety Report 5250304-8 (Version None)
Quarter: 2007Q1

REPORT INFORMATION
  Report Type: 
  Country: None (occurrence: None)
  Receive Date: 20070228
  Receipt Date: 20060321
  Transmission Date: 20070707
  Serious: No
  Sender: FDA-Public Use
  Company Number: US-GLAXOSMITHKLINE-A0598447A

PATIENT
  Sex: Female

DRUGS (4)
  1. LAMICTAL [Suspect]
     Indication: BIPOLAR DISORDER
     Dosage: 125MG PER DAY
     Route: 048
     Dates: start: 20041102, end: 20060304
  2. ZOLOFT [Concomitant]
  3. SEROQUEL [Concomitant]
  4. WELLBUTRIN SR [Concomitant]

REACTIONS (2)
  - RASH [None]
  - SEXUAL DYSFUNCTION [None]
